FAERS Safety Report 9714011 (Version 2)
Quarter: 2015Q3

REPORT INFORMATION
  Report Type: Spontaneous
  Country: US (occurrence: US)
  Receive Date: 20131126
  Receipt Date: 20150803
  Transmission Date: 20151125
  Serious: No
  Sender: FDA-Public Use
  Company Number: US-GILEAD-2008-0018557

PATIENT
  Age: 68 Year
  Sex: Male
  Weight: 92.99 kg

DRUGS (11)
  1. LASIX [Concomitant]
     Active Substance: FUROSEMIDE
  2. LANOXIN [Concomitant]
     Active Substance: DIGOXIN
  3. PROVENTIL MDI [Concomitant]
  4. ALDACTONE [Concomitant]
     Active Substance: SPIRONOLACTONE
  5. COUMADIN [Concomitant]
     Active Substance: WARFARIN SODIUM
  6. ADVAIR DISKUS 250-50 [Concomitant]
  7. FERROUS SULFATE [Concomitant]
     Active Substance: FERROUS SULFATE\FERROUS SULFATE, DRIED
  8. LETAIRIS [Suspect]
     Active Substance: AMBRISENTAN
     Indication: PULMONARY ARTERIAL HYPERTENSION
     Route: 048
     Dates: start: 20080525, end: 20081004
  9. CARDIZEM [Concomitant]
     Active Substance: DILTIAZEM HYDROCHLORIDE
  10. SPIRIVA [Concomitant]
     Active Substance: TIOTROPIUM BROMIDE MONOHYDRATE
  11. MAGNESIUM OXIDE. [Concomitant]
     Active Substance: MAGNESIUM OXIDE

REACTIONS (2)
  - Nervousness [None]
  - Tremor [None]
